FAERS Safety Report 25619727 (Version 1)
Quarter: 2025Q3

REPORT INFORMATION
  Report Type: Spontaneous
  Country: CN (occurrence: CN)
  Receive Date: 20250729
  Receipt Date: 20250729
  Transmission Date: 20251021
  Serious: Yes (Other)
  Sender: ALEXION PHARMACEUTICALS
  Company Number: CN-ASTRAZENECA-202507CHN022789CN

PATIENT
  Age: 56 Year
  Sex: Male
  Weight: 62 kg

DRUGS (3)
  1. XIGDUO XR [Suspect]
     Active Substance: DAPAGLIFLOZIN PROPANEDIOL\METFORMIN HYDROCHLORIDE
     Indication: Blood glucose abnormal
     Dosage: 1 MILLIGRAM, QD
     Dates: start: 20250403, end: 20250719
  2. ALOGLIPTIN BENZOATE [Concomitant]
     Active Substance: ALOGLIPTIN BENZOATE
     Indication: Blood glucose abnormal
     Dosage: 25 MILLIGRAM, QD
     Dates: start: 20250403, end: 20250719
  3. ACARBOSE [Concomitant]
     Active Substance: ACARBOSE
     Indication: Blood glucose abnormal
     Dosage: 50 MILLIGRAM, TID
     Dates: start: 20250403, end: 20250719

REACTIONS (3)
  - Fatigue [Recovering/Resolving]
  - Polyarthritis [Recovering/Resolving]
  - Asthenia [Recovering/Resolving]

NARRATIVE: CASE EVENT DATE: 20250629
